FAERS Safety Report 20096249 (Version 1)
Quarter: 2021Q4

REPORT INFORMATION
  Report Type: Spontaneous
  Country: US (occurrence: US)
  Receive Date: 20211122
  Receipt Date: 20211122
  Transmission Date: 20220303
  Serious: No
  Sender: FDA-Public Use
  Company Number: US-009507513-2111USA001096

PATIENT
  Age: 22 Year
  Sex: Male

DRUGS (1)
  1. ISENTRESS [Suspect]
     Active Substance: RALTEGRAVIR POTASSIUM
     Indication: Ill-defined disorder
     Dosage: 400 MG TWICE DAILY PRESCRIBED; 400 MG DAILY BEING TAKEN
     Route: 048
     Dates: start: 20211015

REACTIONS (4)
  - Inappropriate schedule of product administration [Unknown]
  - Product prescribing issue [Unknown]
  - Product use in unapproved indication [Unknown]
  - No adverse event [Unknown]

NARRATIVE: CASE EVENT DATE: 20211015
